FAERS Safety Report 7109093-4 (Version None)
Quarter: 2010Q4

REPORT INFORMATION
  Report Type: 
  Country: None (occurrence: None)
  Receive Date: 20101117
  Receipt Date: 20100706
  Transmission Date: 20110411
  Serious: Yes (Other)
  Sender: FDA-Public Use
  Company Number: US-ASTRAZENECA-2010SE25489

PATIENT
  Sex: Female
  Weight: 65.8 kg

DRUGS (2)
  1. CRESTOR [Suspect]
     Indication: HYPERCHOLESTEROLAEMIA
     Route: 048
     Dates: start: 20100320, end: 20100520
  2. PROZAC [Interacting]
     Route: 065

REACTIONS (5)
  - ABNORMAL DREAMS [None]
  - DRUG INTERACTION [None]
  - FALL [None]
  - MUSCLE SPASMS [None]
  - NIGHT SWEATS [None]
